FAERS Safety Report 8763089 (Version 2)
Quarter: 2012Q4

REPORT INFORMATION
  Report Type: 
  Country: IN (occurrence: IN)
  Receive Date: 20120831
  Receipt Date: 20120920
  Transmission Date: 20130627
  Serious: Yes (Other)
  Sender: FDA-Public Use
  Company Number: PHHY2012IN074031

PATIENT
  Sex: Male

DRUGS (1)
  1. GLIVEC [Suspect]
     Indication: CHRONIC MYELOID LEUKAEMIA
     Dosage: 400 mg, UNK

REACTIONS (6)
  - Renal failure chronic [Unknown]
  - Meningitis tuberculous [Unknown]
  - Chronic myeloid leukaemia transformation [Unknown]
  - Blast crisis in myelogenous leukaemia [Unknown]
  - Drug ineffective [Unknown]
  - Renal transplant [None]
